FAERS Safety Report 5105120-4 (Version None)
Quarter: 2006Q3

REPORT INFORMATION
  Report Type: 
  Country: None (occurrence: None)
  Receive Date: 20060911
  Receipt Date: 20060812
  Transmission Date: 20061208
  Serious: Yes (Death, Hospitalization)
  Sender: FDA-Public Use
  Company Number: 163-C5013-06060511

PATIENT
  Age: 51 Year
  Sex: Male
  Weight: 80.6 kg

DRUGS (2)
  1. CC-5013 (LENALIDOMIDE) (CAPSULES) [Suspect]
     Indication: MULTIPLE MYELOMA
     Dosage: 25 MG, QD DAYS 1-21, Q28D, ORAL
     Route: 048
     Dates: start: 20060217, end: 20060527
  2. DEXAMETHASONE [Suspect]
     Indication: MULTIPLE MYELOMA
     Dosage: 40 MG, QD DAYS 1-4, 9-12, 17-20, Q28D, ORAL
     Route: 048
     Dates: start: 20060217, end: 20060523

REACTIONS (10)
  - ANAEMIA [None]
  - BLOOD DISORDER [None]
  - BONE PAIN [None]
  - INFECTION [None]
  - LOBAR PNEUMONIA [None]
  - LUNG INFILTRATION [None]
  - PLEURAL EFFUSION [None]
  - RESPIRATORY FAILURE [None]
  - SEPSIS [None]
  - TACHYCARDIA [None]
